FAERS Safety Report 16334713 (Version 3)
Quarter: 2020Q2

REPORT INFORMATION
  Report Type: Spontaneous
  Country: US (occurrence: US)
  Receive Date: 20190520
  Receipt Date: 20200407
  Transmission Date: 20200713
  Serious: Yes (Other)
  Sender: FDA-Public Use
  Company Number: US-GILEAD-2019-0408522

PATIENT
  Sex: Male

DRUGS (29)
  1. STRIBILD [Suspect]
     Active Substance: COBICISTAT\ELVITEGRAVIR\EMTRICITABINE\TENOFOVIR DISOPROXIL FUMARATE
     Indication: HIV INFECTION
     Dosage: UNK
     Route: 065
     Dates: start: 201303, end: 201609
  2. TRAZODONE [Concomitant]
     Active Substance: TRAZODONE HYDROCHLORIDE
  3. DIDANOSINE. [Concomitant]
     Active Substance: DIDANOSINE
  4. REYATAZ [Concomitant]
     Active Substance: ATAZANAVIR SULFATE
  5. LORAZEPAM. [Concomitant]
     Active Substance: LORAZEPAM
  6. NEFAZODONE HCL [Concomitant]
     Active Substance: NEFAZODONE HYDROCHLORIDE
  7. SEROQUEL [Concomitant]
     Active Substance: QUETIAPINE FUMARATE
  8. NICODERM CQ [Concomitant]
     Active Substance: NICOTINE
  9. LAMOTRIGINE. [Concomitant]
     Active Substance: LAMOTRIGINE
  10. SEROSTIM [Concomitant]
     Active Substance: SOMATROPIN
  11. PROCHLORPERAZINE. [Concomitant]
     Active Substance: PROCHLORPERAZINE
  12. VIREAD [Suspect]
     Active Substance: TENOFOVIR DISOPROXIL FUMARATE
     Indication: HIV INFECTION
     Dosage: 1 DOSAGE FORM, QD
     Route: 048
     Dates: start: 200402, end: 201303
  13. GENVOYA [Concomitant]
     Active Substance: COBICISTAT\ELVITEGRAVIR\EMTRICITABINE\TENOFOVIR ALAFENAMIDE FUMARATE
  14. SULFAMETHOXAZOLE AND TRIMETHOPRIM [Concomitant]
     Active Substance: SULFAMETHOXAZOLE\TRIMETHOPRIM
  15. DIAZEPAM. [Concomitant]
     Active Substance: DIAZEPAM
  16. BUPROPION. [Concomitant]
     Active Substance: BUPROPION
  17. ZOLPIDEM [Concomitant]
     Active Substance: ZOLPIDEM TARTRATE
  18. ENDOCET [Concomitant]
     Active Substance: ACETAMINOPHEN\OXYCODONE HYDROCHLORIDE
  19. ANDROGEL [Concomitant]
     Active Substance: TESTOSTERONE
  20. CEPHALEXIN [CEFALEXIN] [Concomitant]
     Active Substance: CEPHALEXIN
  21. FAMOTIDINE. [Concomitant]
     Active Substance: FAMOTIDINE
  22. GENOTROPIN [Concomitant]
     Active Substance: SOMATROPIN
  23. MIRTAZAPINE. [Concomitant]
     Active Substance: MIRTAZAPINE
  24. QUETIAPINE. [Concomitant]
     Active Substance: QUETIAPINE
  25. ABILIFY [Concomitant]
     Active Substance: ARIPIPRAZOLE
  26. OXANDROLONE. [Concomitant]
     Active Substance: OXANDROLONE
  27. TRUVADA [Suspect]
     Active Substance: EMTRICITABINE\TENOFOVIR DISOPROXIL FUMARATE
     Indication: HIV INFECTION
     Dosage: UNK
     Route: 048
     Dates: start: 200803, end: 201611
  28. FLUCONAZOLE. [Concomitant]
     Active Substance: FLUCONAZOLE
  29. DRONABINOL. [Concomitant]
     Active Substance: DRONABINOL

REACTIONS (9)
  - Anxiety [Unknown]
  - Osteoporotic fracture [Unknown]
  - Pain [Unknown]
  - Economic problem [Unknown]
  - Tooth loss [Recovered/Resolved]
  - Bone density decreased [Not Recovered/Not Resolved]
  - Anhedonia [Unknown]
  - Emotional distress [Unknown]
  - Osteomalacia [Not Recovered/Not Resolved]

NARRATIVE: CASE EVENT DATE: 2008
